FAERS Safety Report 7889982-3 (Version None)
Quarter: 2011Q4

REPORT INFORMATION
  Report Type: 
  Country: None (occurrence: None)
  Receive Date: 20111103
  Receipt Date: 20110503
  Transmission Date: 20120403
  Serious: No
  Sender: FDA-Public Use
  Company Number: US-ASTRAZENECA-2011SE26087

PATIENT
  Sex: Female

DRUGS (1)
  1. PULMICORT [Suspect]
     Indication: CHOKING
     Dosage: ONE AMPULE OF THE 0.5 MG/2 ML DAILY
     Route: 055

REACTIONS (1)
  - OFF LABEL USE [None]
